FAERS Safety Report 6656229-5 (Version None)
Quarter: 2010Q1

REPORT INFORMATION
  Report Type: 
  Country: None (occurrence: None)
  Receive Date: 20100326
  Receipt Date: 20100326
  Transmission Date: 20100710
  Serious: Yes (Other)
  Sender: FDA-Public Use
  Company Number: None

PATIENT
  Age: 37 Year
  Sex: Male
  Weight: 195 kg

DRUGS (2)
  1. VALTREX [Suspect]
     Indication: GENITAL HERPES
     Dosage: ONE TABLET ONCE DAILY PO
     Route: 048
     Dates: start: 20060707, end: 20060715
  2. VALTREX [Suspect]
     Indication: GENITAL HERPES
     Dosage: ONE TABLET ONCE DAILY PO
     Route: 048
     Dates: start: 20070808, end: 20070815

REACTIONS (3)
  - AGITATION [None]
  - ANGER [None]
  - HOSTILITY [None]
